FAERS Safety Report 5428689-9 (Version None)
Quarter: 2007Q3

REPORT INFORMATION
  Report Type: 
  Country: None (occurrence: None)
  Receive Date: 20070828
  Receipt Date: 20070820
  Transmission Date: 20080115
  Serious: Yes (Other)
  Sender: FDA-Public Use
  Company Number: US-SHR-US-2007-008041

PATIENT
  Age: 59 Year
  Sex: Female
  Weight: 77.098 kg

DRUGS (7)
  1. BETASERON [Suspect]
     Indication: RELAPSING-REMITTING MULTIPLE SCLEROSIS
     Dosage: 8 MIU, EVERY 2D
     Route: 058
     Dates: start: 19950101, end: 20010301
  2. BETASERON [Suspect]
     Dosage: 8 MIU, EVERY 2D
     Route: 058
     Dates: start: 20011201
  3. LOTREL [Concomitant]
     Indication: HYPERTENSION
     Dosage: 5/20 MG, 2X/DAY
     Route: 048
     Dates: start: 20011016
  4. SYNTHROID [Concomitant]
     Indication: HYPOTHYROIDISM
     Dosage: 50 A?G/DAY, UNK
     Route: 048
  5. CENTRUM [Concomitant]
  6. MAXZIDE [Concomitant]
     Indication: HYPERTENSION
     Dosage: 25 MG, 1X/DAY, PRN
     Route: 048
  7. LUNESTA [Concomitant]
     Indication: INSOMNIA
     Dosage: 2 MG, BED T., PRN
     Route: 048

REACTIONS (9)
  - BLOOD PRESSURE INCREASED [None]
  - CHILLS [None]
  - DIVERTICULUM INTESTINAL [None]
  - MALAISE [None]
  - MULTIPLE SCLEROSIS [None]
  - NON-HODGKIN'S LYMPHOMA [None]
  - NON-HODGKIN'S LYMPHOMA RECURRENT [None]
  - PARAESTHESIA [None]
  - PHARYNGOLARYNGEAL PAIN [None]
